FAERS Safety Report 7329447-0 (Version None)
Quarter: 2011Q1

REPORT INFORMATION
  Report Type: 
  Country: None (occurrence: None)
  Receive Date: 20110303
  Receipt Date: 20110301
  Transmission Date: 20110831
  Serious: Yes (Death)
  Sender: FDA-Public Use
  Company Number: JP-PFIZER INC-2011043649

PATIENT
  Age: 66 Year
  Sex: Female
  Weight: 54 kg

DRUGS (9)
  1. PREDONINE [Concomitant]
     Dosage: UNK
     Route: 048
     Dates: end: 20061104
  2. VORICONAZOLE [Suspect]
     Indication: BRONCHOPULMONARY ASPERGILLOSIS
     Dosage: 2 MG/KG, 2X/DAY
     Route: 041
     Dates: start: 20061031, end: 20061106
  3. NEORAL [Concomitant]
     Dosage: UNK
     Route: 048
     Dates: end: 20061104
  4. BACTRIM [Concomitant]
     Indication: INFECTION
     Dosage: UNK
     Route: 041
     Dates: start: 20061105, end: 20061106
  5. ADALAT [Concomitant]
     Dosage: UNK
     Route: 048
     Dates: end: 20061104
  6. BAKTAR [Concomitant]
     Indication: INFECTION
     Dosage: UNK
     Route: 048
     Dates: end: 20061104
  7. GLOVENIN [Concomitant]
     Indication: INFECTION
     Dosage: UNK
     Route: 041
     Dates: start: 20061102, end: 20061104
  8. BIAPENEM [Concomitant]
     Indication: INFECTION
     Dosage: UNK
     Route: 048
     Dates: end: 20061101
  9. PASIL [Concomitant]
     Indication: INFECTION
     Dosage: UNK
     Route: 041
     Dates: start: 20061101, end: 20061106

REACTIONS (1)
  - DEATH [None]
